FAERS Safety Report 6843853-X (Version None)
Quarter: 2010Q3

REPORT INFORMATION
  Report Type: 
  Country: None (occurrence: None)
  Receive Date: 20100715
  Receipt Date: 20100702
  Transmission Date: 20110219
  Serious: Yes (Other)
  Sender: FDA-Public Use
  Company Number: PHHY2010US43981

PATIENT
  Sex: Female
  Weight: 64 kg

DRUGS (1)
  1. EXJADE [Suspect]
     Indication: B-CELL LYMPHOMA
     Dosage: 1500 MG, QD
     Route: 048
     Dates: start: 20100603

REACTIONS (1)
  - TRANSPLANT [None]
